FAERS Safety Report 16523486 (Version 2)
Quarter: 2019Q4

REPORT INFORMATION
  Report Type: Report from Study
  Country: CA (occurrence: CA)
  Receive Date: 20190703
  Receipt Date: 20191206
  Transmission Date: 20200122
  Serious: Yes (Hospitalization, Other)
  Sender: FDA-Public Use
  Company Number: CA-BAYER-2019-124331

PATIENT
  Age: 59 Year
  Sex: Male

DRUGS (5)
  1. BETASERON [Suspect]
     Active Substance: INTERFERON BETA-1B
     Indication: MULTIPLE SCLEROSIS
     Dosage: 0.25 MG
     Route: 058
     Dates: start: 19980201
  2. MORPHINE [Concomitant]
     Active Substance: MORPHINE
     Dosage: 30 MG, Q8HR
  3. AMITRIPTYLINE [Concomitant]
     Active Substance: AMITRIPTYLINE
     Dosage: UNK
  4. ATENOLOL. [Concomitant]
     Active Substance: ATENOLOL
     Dosage: UNK
  5. BETASERON [Suspect]
     Active Substance: INTERFERON BETA-1B
     Indication: MULTIPLE SCLEROSIS
     Dosage: 9.6 MIU, QOD
     Dates: start: 2008

REACTIONS (6)
  - Renal failure [Recovered/Resolved]
  - Hypertension [Not Recovered/Not Resolved]
  - Localised infection [Recovered/Resolved]
  - Staphylococcal sepsis [Recovered/Resolved]
  - Neuralgia [None]
  - Cellulitis [Recovered/Resolved]

NARRATIVE: CASE EVENT DATE: 2019
